FAERS Safety Report 7335823-2 (Version None)
Quarter: 2011Q1

REPORT INFORMATION
  Report Type: 
  Country: None (occurrence: None)
  Receive Date: 20110307
  Receipt Date: 20110225
  Transmission Date: 20110831
  Serious: Yes (Other)
  Sender: FDA-Public Use
  Company Number: PT-MERCK-1102PRT00020

PATIENT
  Age: 73 Year
  Sex: Male

DRUGS (2)
  1. INVANZ [Suspect]
     Route: 065
  2. INVANZ [Suspect]
     Route: 065

REACTIONS (1)
  - SKIN REACTION [None]
